FAERS Safety Report 26098011 (Version 2)
Quarter: 2025Q4

REPORT INFORMATION
  Report Type: Report from Study
  Country: US (occurrence: US)
  Receive Date: 20251127
  Receipt Date: 20251209
  Transmission Date: 20260117
  Serious: Yes (Other)
  Sender: ALEXION PHARMACEUTICALS
  Company Number: US-AstraZeneca-CH-01001117A

PATIENT
  Sex: Female

DRUGS (1)
  1. ULTOMIRIS [Suspect]
     Active Substance: RAVULIZUMAB-CWVZ
     Indication: Neuromyelitis optica spectrum disorder
     Dosage: UNK
     Route: 065

REACTIONS (16)
  - Narcolepsy [Unknown]
  - Neuropathy peripheral [Unknown]
  - Illness [Unknown]
  - Fatigue [Unknown]
  - Lethargy [Unknown]
  - Fluid retention [Unknown]
  - Peripheral swelling [Unknown]
  - Limb discomfort [Unknown]
  - Gait disturbance [Unknown]
  - Decreased appetite [Unknown]
  - Headache [Unknown]
  - Musculoskeletal stiffness [Unknown]
  - Somnolence [Unknown]
  - Diplopia [Unknown]
  - Neck pain [Unknown]
  - Back pain [Unknown]
